FAERS Safety Report 13106564 (Version 7)
Quarter: 2018Q4

REPORT INFORMATION
  Report Type: Report from Study
  Country: US (occurrence: US)
  Receive Date: 20170111
  Receipt Date: 20181024
  Transmission Date: 20190204
  Serious: Yes (Death, Hospitalization)
  Sender: FDA-Public Use
  Company Number: US-ACTELION-A-US2016-147501

PATIENT
  Age: 60 Year
  Sex: Female

DRUGS (1)
  1. OPSUMIT [Suspect]
     Active Substance: MACITENTAN
     Indication: PULMONARY ARTERIAL HYPERTENSION
     Dosage: UNK
     Route: 048
     Dates: start: 20161026, end: 20170525

REACTIONS (11)
  - Pulmonary hypertension [Unknown]
  - Mental status changes [Recovered/Resolved with Sequelae]
  - End stage renal disease [Unknown]
  - Cerebral haemorrhage [Fatal]
  - Urinary tract infection [Unknown]
  - Chronic hepatic failure [Unknown]
  - Hepatic cirrhosis [Unknown]
  - Hepatic encephalopathy [Recovered/Resolved with Sequelae]
  - Hypotension [Unknown]
  - Nausea [Recovered/Resolved with Sequelae]
  - Septic shock [Unknown]

NARRATIVE: CASE EVENT DATE: 20161124
